FAERS Safety Report 10189662 (Version 3)
Quarter: 2015Q3

REPORT INFORMATION
  Report Type: Spontaneous
  Country: FR (occurrence: FR)
  Receive Date: 20140522
  Receipt Date: 20150730
  Transmission Date: 20151125
  Serious: Yes (Hospitalization)
  Sender: FDA-Public Use
  Company Number: FR-PFIZER INC-2014138419

PATIENT
  Age: 69 Year
  Sex: Female

DRUGS (2)
  1. XANAX [Suspect]
     Active Substance: ALPRAZOLAM
     Dosage: UNK
     Route: 048
     Dates: start: 20140415, end: 20140417
  2. TERCIAN [Suspect]
     Active Substance: CYAMEMAZINE
     Dosage: UNK
     Route: 048
     Dates: start: 20140415, end: 20140417

REACTIONS (4)
  - Infective exacerbation of chronic obstructive airways disease [Recovering/Resolving]
  - Coma [Recovered/Resolved]
  - Hypoxic-ischaemic encephalopathy [Recovering/Resolving]
  - Acute respiratory failure [Unknown]

NARRATIVE: CASE EVENT DATE: 201404
